FAERS Safety Report 8845628 (Version 4)
Quarter: 2013Q1

REPORT INFORMATION
  Report Type: Spontaneous
  Country: JP (occurrence: JP)
  Receive Date: 20121017
  Receipt Date: 20130102
  Transmission Date: 20140127
  Serious: Yes (Hospitalization, Other)
  Sender: FDA-Public Use
  Company Number: JP-B.I. PHARMACEUTICALS,INC./RIDGEFIELD-2011-BP-07451NB

PATIENT
  Age: 73 Year
  Sex: Female
  Weight: 56 kg

DRUGS (7)
  1. MICOMBI COMBINATION [Suspect]
     Indication: HYPERTENSION
     Route: 048
     Dates: start: 20110218, end: 20110228
  2. PEGASYS [Suspect]
     Indication: CHRONIC HEPATITIS C
     Route: 058
     Dates: start: 20100519, end: 20110126
  3. BAYASPIRIN [Concomitant]
     Indication: TRANSIENT ISCHAEMIC ATTACK
     Dosage: 100 MG
     Route: 048
     Dates: start: 20021109
  4. ATELEC [Concomitant]
     Indication: HYPERTENSION
     Dosage: 10 MG
     Route: 048
     Dates: start: 20080905
  5. TENORMIN [Concomitant]
     Indication: HYPERTENSION
     Dosage: 25 MG
     Route: 048
     Dates: start: 20080905
  6. ALTAT [Concomitant]
     Dosage: 150 MG
     Route: 048
     Dates: start: 20110224, end: 20110302
  7. DEPAS [Concomitant]
     Dosage: 1 MG
     Route: 048
     Dates: start: 20080905

REACTIONS (1)
  - Inappropriate antidiuretic hormone secretion [Not Recovered/Not Resolved]
